FAERS Safety Report 14385944 (Version 2)
Quarter: 2018Q1

REPORT INFORMATION
  Report Type: Other
  Country: IT (occurrence: IT)
  Receive Date: 20180115
  Receipt Date: 20180118
  Transmission Date: 20180509
  Serious: Yes (Hospitalization)
  Sender: FDA-Public Use
  Company Number: IT-TAKEDA-2018TEU000194

PATIENT
  Age: 75 Year
  Sex: Male

DRUGS (1)
  1. COMPETACT [Suspect]
     Active Substance: METFORMIN HYDROCHLORIDE\PIOGLITAZONE HYDROCHLORIDE
     Indication: DIABETES MELLITUS
     Dosage: UNK UNK, QD
     Route: 048
     Dates: end: 20180106

REACTIONS (1)
  - Distributive shock [Unknown]

NARRATIVE: CASE EVENT DATE: 20180106
